FAERS Safety Report 17585858 (Version 5)
Quarter: 2022Q3

REPORT INFORMATION
  Report Type: Spontaneous
  Country: US (occurrence: US)
  Receive Date: 20200326
  Receipt Date: 20220805
  Transmission Date: 20221026
  Serious: Yes (Other)
  Sender: FDA-Public Use
  Company Number: US-PFIZER INC-2020127341

PATIENT
  Age: 32 Year
  Sex: Male

DRUGS (1)
  1. XELJANZ [Suspect]
     Active Substance: TOFACITINIB CITRATE
     Indication: Crohn^s disease
     Dosage: 15 MG, DAILY (5MG 2 TABLETS IN THE MORNING AND 1 TABLET IN THE EVENING)

REACTIONS (3)
  - Crohn^s disease [Unknown]
  - Drug effective for unapproved indication [Unknown]
  - Off label use [Unknown]
